FAERS Safety Report 7702379-1 (Version None)
Quarter: 2011Q3

REPORT INFORMATION
  Report Type: 
  Country: None (occurrence: None)
  Receive Date: 20110822
  Receipt Date: 20110809
  Transmission Date: 20111222
  Serious: Yes (Hospitalization, Other)
  Sender: FDA-Public Use
  Company Number: US-CELGENEUS-163-21880-08010482

PATIENT
  Age: 67 Year
  Sex: Female
  Weight: 52.2 kg

DRUGS (6)
  1. CINACALCET [Concomitant]
     Indication: BLOOD CALCIUM INCREASED
     Route: 065
     Dates: start: 20080104
  2. PAMIDRONATE DISODIUM [Concomitant]
     Indication: BLOOD CALCIUM INCREASED
     Route: 065
  3. MELPHALAN HYDROCHLORIDE [Suspect]
     Dosage: PULSE DOSED
     Route: 065
     Dates: start: 20071228, end: 20071231
  4. PREDNISONE [Suspect]
     Dosage: PULSE DOSED
     Route: 065
     Dates: start: 20071228, end: 20071231
  5. TEMSIROLIMUS [Suspect]
     Indication: MULTIPLE MYELOMA
     Dosage: 15 MILLIGRAM
     Route: 041
     Dates: start: 20071119, end: 20071210
  6. REVLIMID [Suspect]
     Dosage: 20 MILLIGRAM
     Route: 048
     Dates: start: 20071119, end: 20071209

REACTIONS (3)
  - DIARRHOEA [None]
  - DEHYDRATION [None]
  - HYPOPHOSPHATAEMIA [None]
